FAERS Safety Report 4665991-2 (Version None)
Quarter: 2005Q2

REPORT INFORMATION
  Report Type: 
  Country: None (occurrence: None)
  Receive Date: 20050517
  Receipt Date: 20050117
  Transmission Date: 20051028
  Serious: Yes (Death)
  Sender: FDA-Public Use
  Company Number: S05-USA-01040-05

PATIENT
  Age: 81 Year
  Sex: Female
  Weight: 76.6579 kg

DRUGS (6)
  1. NAMENDA [Suspect]
     Indication: DEMENTIA ALZHEIMER'S TYPE
     Dosage: 10 MG BID PO
     Route: 048
     Dates: start: 20040101, end: 20041101
  2. SEROQUEL [Concomitant]
  3. TRAZODONE [Concomitant]
  4. NORVASC(AMODIPINE BESILATE) [Concomitant]
  5. ARICEPT [Concomitant]
  6. ZESTORETIC [Concomitant]

REACTIONS (1)
  - DEATH [None]
